FAERS Safety Report 11591752 (Version 1)
Quarter: 2015Q4

REPORT INFORMATION
  Report Type: Spontaneous
  Country: US (occurrence: US)
  Receive Date: 20151005
  Receipt Date: 20151005
  Transmission Date: 20160304
  Serious: No
  Sender: FDA-Public Use
  Company Number: US-SUN PHARMACEUTICAL INDUSTRIES LTD-2015US-98833

PATIENT
  Age: 67 Year
  Sex: Female

DRUGS (1)
  1. LORAZEPAM. [Suspect]
     Active Substance: LORAZEPAM
     Indication: ANXIETY
     Dosage: .5 MG, QID
     Route: 065
     Dates: start: 201505

REACTIONS (3)
  - Somnolence [Unknown]
  - Therapeutic response decreased [Unknown]
  - Self-medication [Unknown]

NARRATIVE: CASE EVENT DATE: 201505
